FAERS Safety Report 20546952 (Version 1)
Quarter: 2022Q1

REPORT INFORMATION
  Report Type: Report from Study
  Country: US (occurrence: US)
  Receive Date: 20220303
  Receipt Date: 20220303
  Transmission Date: 20220423
  Serious: Yes (Other)
  Sender: FDA-Public Use
  Company Number: US-GILEAD-2022-0570598

PATIENT
  Age: 45 Year
  Sex: Male
  Weight: 74 kg

DRUGS (44)
  1. SOFOSBUVIR\VELPATASVIR [Suspect]
     Active Substance: SOFOSBUVIR\VELPATASVIR
     Indication: Product used for unknown indication
     Dosage: 1 DOSAGE FORM, 400/100 MG
     Route: 065
     Dates: start: 20200530, end: 20200817
  2. ALPRAZOLAM [Concomitant]
     Active Substance: ALPRAZOLAM
     Indication: Anxiety
  3. AMIODARONE [Concomitant]
     Active Substance: AMIODARONE
     Indication: Supraventricular tachycardia
  4. AMPICILLIN AND SULBACTAM [Concomitant]
     Active Substance: AMPICILLIN SODIUM\SULBACTAM SODIUM
  5. ASPIRIN [Concomitant]
     Active Substance: ASPIRIN
  6. BASILIXIMAB [Concomitant]
     Active Substance: BASILIXIMAB
     Indication: Immunosuppression
  7. CALCIUM CARBONATE [Concomitant]
     Active Substance: CALCIUM CARBONATE
  8. CAPTOPRIL [Concomitant]
     Active Substance: CAPTOPRIL
     Indication: Cardiomyopathy
  9. CARVEDILOL [Concomitant]
     Active Substance: CARVEDILOL
  10. CELLCEPT [Concomitant]
     Active Substance: MYCOPHENOLATE MOFETIL
     Indication: Immunosuppression
  11. CEPHALEXIN [Concomitant]
     Active Substance: CEPHALEXIN
     Indication: Antibiotic prophylaxis
  12. CHLORHEXIDINE [Concomitant]
     Active Substance: CHLORHEXIDINE
  13. CITALOPRAM [Concomitant]
     Active Substance: CITALOPRAM HYDROBROMIDE
     Indication: Anxiety
  14. CLONIDINE [Concomitant]
     Active Substance: CLONIDINE
     Indication: Hypertension
  15. COLCHICINE [Concomitant]
     Active Substance: COLCHICINE
     Indication: Gout
  16. DOCUSATE SODIUM [Concomitant]
     Active Substance: DOCUSATE SODIUM
  17. ENTRESTO [Concomitant]
     Active Substance: SACUBITRIL\VALSARTAN
  18. FERROUS SULFATE [Concomitant]
     Active Substance: FERROUS SULFATE
  19. GABAPENTIN [Concomitant]
     Active Substance: GABAPENTIN
  20. GUAIFENESIN [Concomitant]
     Active Substance: GUAIFENESIN
     Indication: Cough
  21. HEPARIN [Concomitant]
     Active Substance: HEPARIN SODIUM
     Indication: Aortic valve replacement
  22. INSULIN ASPART [Concomitant]
     Active Substance: INSULIN ASPART
     Indication: Diabetes mellitus
  23. INSULIN DETEMIR [Concomitant]
     Active Substance: INSULIN DETEMIR
     Indication: Diabetes mellitus
  24. LASIX [Concomitant]
     Active Substance: FUROSEMIDE
     Indication: Cardiogenic shock
  25. MAGNESIUM OXIDE [Concomitant]
     Active Substance: MAGNESIUM OXIDE
  26. METFORMIN [Concomitant]
     Active Substance: METFORMIN HYDROCHLORIDE
     Indication: Diabetes mellitus
  27. METHYLPREDNISOLONE [Concomitant]
     Active Substance: METHYLPREDNISOLONE
  28. METOLAZONE [Concomitant]
     Active Substance: METOLAZONE
  29. MILRINONE [Concomitant]
     Active Substance: MILRINONE
     Indication: Cardiogenic shock
  30. NORVASC [Concomitant]
     Active Substance: AMLODIPINE BESYLATE
     Indication: Hypertension
  31. NYSTATIN [Concomitant]
     Active Substance: NYSTATIN
     Indication: Antifungal prophylaxis
  32. OMEPRAZOLE [Concomitant]
     Active Substance: OMEPRAZOLE
     Indication: Gastrooesophageal reflux disease
  33. OXYCODONE [Concomitant]
     Active Substance: OXYCODONE
     Indication: Procedural pain
  34. PANTOPRAZOLE [Concomitant]
     Active Substance: PANTOPRAZOLE
  35. POTASSIUM CHLORIDE [Concomitant]
     Active Substance: POTASSIUM CHLORIDE
  36. PRAVASTATIN [Concomitant]
     Active Substance: PRAVASTATIN
  37. PREDNISONE [Concomitant]
     Active Substance: PREDNISONE
     Indication: Immunosuppression
  38. PROGRAF [Concomitant]
     Active Substance: TACROLIMUS
     Indication: Immunosuppression
  39. REMERON [Concomitant]
     Active Substance: MIRTAZAPINE
     Indication: Insomnia
  40. SULFAMETHOXAZOLE AND TRIMETHOPRIM [Concomitant]
     Active Substance: SULFAMETHOXAZOLE\TRIMETHOPRIM
     Indication: Antibiotic prophylaxis
  41. THYMOGLOBULIN [Concomitant]
     Active Substance: LAPINE T-LYMPHOCYTE IMMUNE GLOBULIN
     Indication: Immunosuppression
  42. TORSEMIDE [Concomitant]
     Active Substance: TORSEMIDE
  43. VALGANCICLOVIR [Concomitant]
     Active Substance: VALGANCICLOVIR
     Indication: Antiviral prophylaxis
  44. WARFARIN [Concomitant]
     Active Substance: WARFARIN

REACTIONS (8)
  - Transplant rejection [Unknown]
  - Transplant rejection [Unknown]
  - Cytopenia [Unknown]
  - Hyperkalaemia [Unknown]
  - Wound drainage [Unknown]
  - C-reactive protein increased [Unknown]
  - Gout [Unknown]
  - Arthralgia [Unknown]

NARRATIVE: CASE EVENT DATE: 20200606
